FAERS Safety Report 5042935-5 (Version None)
Quarter: 2006Q3

REPORT INFORMATION
  Report Type: 
  Country: None (occurrence: None)
  Receive Date: 20060705
  Receipt Date: 20060626
  Transmission Date: 20061208
  Serious: Yes (Other)
  Sender: FDA-Public Use
  Company Number: FR-BRISTOL-MYERS SQUIBB COMPANY-13427455

PATIENT
  Age: 63 Year
  Sex: Female

DRUGS (1)
  1. VASTEN TABS [Suspect]
     Route: 048

REACTIONS (1)
  - CONJUNCTIVAL HAEMORRHAGE [None]
